FAERS Safety Report 7291068-6 (Version None)
Quarter: 2011Q1

REPORT INFORMATION
  Report Type: 
  Country: None (occurrence: None)
  Receive Date: 20110214
  Receipt Date: 20110201
  Transmission Date: 20110831
  Serious: Yes (Life-Threatening, Hospitalization)
  Sender: FDA-Public Use
  Company Number: GB-ACTELION-A-CH2003-01874

PATIENT
  Sex: Female

DRUGS (6)
  1. WARFARIN [Concomitant]
     Dates: end: 20021231
  2. TRACLEER [Suspect]
     Dosage: 125 MG, BID
     Route: 048
     Dates: start: 20030523
  3. VENTAVIS [Concomitant]
     Indication: PULMONARY ARTERIAL HYPERTENSION
     Dosage: 6.6 NG, UNK
     Route: 045
  4. TINZAPARIN SODIUM [Concomitant]
     Dosage: .5 ML, UNK
     Route: 058
  5. TRACLEER [Suspect]
     Indication: PULMONARY ARTERIAL HYPERTENSION
     Dosage: 125 MG, BID
     Route: 048
     Dates: start: 20020817, end: 20021230
  6. TRACLEER [Suspect]
     Dosage: 62.5 MG, BID
     Route: 048
     Dates: start: 20020717, end: 20020816

REACTIONS (12)
  - UTERINE CONTRACTIONS DURING PREGNANCY [None]
  - CARDIO-RESPIRATORY ARREST [None]
  - PREMATURE BABY [None]
  - ANAEMIA [None]
  - PULMONARY ARTERIAL HYPERTENSION [None]
  - DYSPNOEA [None]
  - COUGH [None]
  - CONDITION AGGRAVATED [None]
  - TRANSFUSION [None]
  - FEMALE STERILISATION [None]
  - CAESAREAN SECTION [None]
  - PREGNANCY [None]
